FAERS Safety Report 25942150 (Version 1)
Quarter: 2025Q4

REPORT INFORMATION
  Report Type: Spontaneous
  Country: CA (occurrence: CA)
  Receive Date: 20251020
  Receipt Date: 20251020
  Transmission Date: 20260117
  Serious: Yes (Other)
  Sender: SANDOZ
  Company Number: CA-SANDOZ-SDZ2025CA076761

PATIENT
  Age: 93 Year
  Sex: Female

DRUGS (1)
  1. ZOLEDRONIC ACID [Suspect]
     Active Substance: ZOLEDRONIC ACID
     Indication: Osteoporosis
     Dosage: UNK, Q12MO
     Route: 042

REACTIONS (5)
  - Compression fracture [Unknown]
  - Fall [Unknown]
  - Leukaemia [Unknown]
  - Malaise [Unknown]
  - Asthenia [Unknown]
